FAERS Safety Report 20002380 (Version 2)
Quarter: 2021Q4

REPORT INFORMATION
  Report Type: Spontaneous
  Country: DE (occurrence: DE)
  Receive Date: 20211027
  Receipt Date: 20211110
  Transmission Date: 20220303
  Serious: Yes (Hospitalization, Other)
  Sender: FDA-Public Use
  Company Number: DE-HORMOSAN PHARMA GMBH-2021-20280

PATIENT
  Age: 66 Year
  Sex: Male
  Weight: 82 kg

DRUGS (8)
  1. LEVETIRACETAM [Suspect]
     Active Substance: LEVETIRACETAM
     Indication: Epilepsy
     Dosage: 2 DOSAGE FORM, QD (ONE IN THE MORNING ONE IN THE EVENING)
     Route: 048
     Dates: start: 2017
  2. LEVETIRACETAM [Suspect]
     Active Substance: LEVETIRACETAM
     Dosage: 2 DOSAGE FORM, QD (ONE IN THE MORNING ONE IN THE EVENING)
     Route: 048
     Dates: start: 202109
  3. LEVETIRACETAM [Suspect]
     Active Substance: LEVETIRACETAM
     Dosage: 4 DOSAGE FORM, BID (2 TABLETS IN THE MORNING AND 2 IN THE EVENING)
     Route: 048
     Dates: start: 20210928, end: 20211002
  4. LEVETIRACETAM [Suspect]
     Active Substance: LEVETIRACETAM
     Dosage: 2 DOSAGE FORM, QD (ONE IN THE MORNING ONE IN THE EVENING)
     Route: 048
     Dates: start: 2021
  5. ENALAPRIL [Concomitant]
     Active Substance: ENALAPRIL
     Indication: Drug therapy
     Dosage: UNK
     Route: 065
  6. BISOPROLOL FUMARATE [Concomitant]
     Active Substance: BISOPROLOL FUMARATE
     Indication: Drug therapy
     Dosage: UNK
     Route: 065
  7. PANTOPRAZOLE [Concomitant]
     Active Substance: PANTOPRAZOLE
     Indication: Drug therapy
     Dosage: UNK
     Route: 065
  8. MARCUMAR [Concomitant]
     Active Substance: PHENPROCOUMON
     Indication: Anticoagulant therapy
     Dosage: UNK
     Route: 065

REACTIONS (3)
  - Epilepsy [Recovered/Resolved]
  - Listless [Not Recovered/Not Resolved]
  - Fatigue [Not Recovered/Not Resolved]

NARRATIVE: CASE EVENT DATE: 20210927
